FAERS Safety Report 11654797 (Version 5)
Quarter: 2016Q1

REPORT INFORMATION
  Report Type: Report from Study
  Country: BR (occurrence: BR)
  Receive Date: 20151023
  Receipt Date: 20160321
  Transmission Date: 20160525
  Serious: Yes (Hospitalization, Other)
  Sender: FDA-Public Use
  Company Number: PHHY2015BR136723

PATIENT
  Age: 34 Year
  Sex: Female
  Weight: 120 kg

DRUGS (2)
  1. GILENYA [Suspect]
     Active Substance: FINGOLIMOD HYDROCHLORIDE
     Indication: MULTIPLE SCLEROSIS
     Dosage: 0.5 MG, QD
     Route: 048
     Dates: start: 201412, end: 201601
  2. TYSABRI [Suspect]
     Active Substance: NATALIZUMAB
     Indication: MULTIPLE SCLEROSIS
     Dosage: 1 DF, QMO
     Route: 042
     Dates: start: 201602

REACTIONS (18)
  - Dizziness [Recovering/Resolving]
  - Gait disturbance [Recovering/Resolving]
  - Concomitant disease aggravated [Recovering/Resolving]
  - Speech disorder [Recovering/Resolving]
  - Blepharospasm [Recovering/Resolving]
  - Fatigue [Not Recovered/Not Resolved]
  - Tremor [Recovering/Resolving]
  - Injury [Unknown]
  - Weight decreased [Not Recovered/Not Resolved]
  - Multiple sclerosis relapse [Recovering/Resolving]
  - Gastrooesophageal reflux disease [Recovering/Resolving]
  - Dyspnoea [Recovering/Resolving]
  - Facial paralysis [Recovering/Resolving]
  - Rhinitis allergic [Recovering/Resolving]
  - Anxiety [Recovering/Resolving]
  - Helicobacter gastritis [Unknown]
  - Hemiplegia [Recovering/Resolving]
  - Muscular weakness [Unknown]

NARRATIVE: CASE EVENT DATE: 201512
